FAERS Safety Report 18855476 (Version 1)
Quarter: 2021Q1

REPORT INFORMATION
  Report Type: Spontaneous
  Country: CA (occurrence: CA)
  Receive Date: 20210205
  Receipt Date: 20210205
  Transmission Date: 20210420
  Serious: Yes (Hospitalization)
  Sender: FDA-Public Use
  Company Number: CA-JACOBUS PHARMACEUTICAL COMPANY, INC.-2106422

PATIENT
  Age: 24 Month
  Sex: Female
  Weight: 15 kg

DRUGS (6)
  1. DAPSONE. [Suspect]
     Active Substance: DAPSONE
     Route: 065
  2. VITAMIN E LOTION [Concomitant]
  3. BISOPROLOL. [Concomitant]
     Active Substance: BISOPROLOL FUMARATE
  4. RANITIDINE. [Concomitant]
     Active Substance: RANITIDINE
  5. CYANOCOBALAMIN. [Concomitant]
     Active Substance: CYANOCOBALAMIN
  6. PERINDOPRIL ERBUMINE. [Concomitant]
     Active Substance: PERINDOPRIL ERBUMINE

REACTIONS (1)
  - Accidental poisoning [Recovered/Resolved]

NARRATIVE: CASE EVENT DATE: 20200630
